FAERS Safety Report 25671676 (Version 1)
Quarter: 2025Q3

REPORT INFORMATION
  Report Type: Spontaneous
  Country: EU (occurrence: EU)
  Receive Date: 20250812
  Receipt Date: 20250812
  Transmission Date: 20251021
  Serious: Yes (Life-Threatening, Hospitalization)
  Sender: PFIZER
  Company Number: None

PATIENT
  Age: 54 Year
  Sex: Female
  Weight: 63 kg

DRUGS (4)
  1. BEVACIZUMAB [Suspect]
     Active Substance: BEVACIZUMAB
     Indication: Hepatocellular carcinoma
     Route: 042
     Dates: start: 20250624, end: 20250624
  2. ATEZOLIZUMAB [Suspect]
     Active Substance: ATEZOLIZUMAB
     Indication: Hepatocellular carcinoma
     Route: 042
     Dates: start: 20250624, end: 20250624
  3. TACROLIMUS [Concomitant]
     Active Substance: TACROLIMUS
     Indication: Liver transplant
     Dosage: 5 MG, DAILY
     Route: 048
  4. LEVOTHYROXINE [Concomitant]
     Active Substance: LEVOTHYROXINE
     Indication: Hypothyroidism
     Dosage: 25 UG, 1X/DAY
     Route: 048

REACTIONS (2)
  - Liver transplant rejection [Not Recovered/Not Resolved]
  - Off label use [Not Recovered/Not Resolved]

NARRATIVE: CASE EVENT DATE: 20250624
